FAERS Safety Report 8406138-6 (Version None)
Quarter: 2012Q2

REPORT INFORMATION
  Report Type: 
  Country: None (occurrence: None)
  Receive Date: 20120529
  Receipt Date: 20081006
  Transmission Date: 20120825
  Serious: Yes (Death, Life-Threatening)
  Sender: FDA-Public Use
  Company Number: 004262

PATIENT
  Age: 80 Year
  Sex: Male
  Weight: 70 kg

DRUGS (6)
  1. RECOGNAN (CITICOLINE) [Concomitant]
  2. OMEPRAL (OMEPRAZOLE SODIUM) [Concomitant]
  3. ALEVIATIN (PHENYTOIN SODIUM) [Concomitant]
  4. PLETAL [Suspect]
     Indication: CEREBRAL INFARCTION
     Dosage: 100 MG, BID, ORAL
     Route: 048
     Dates: start: 20080702, end: 20080903
  5. RADICUT (EDARAVONE) [Concomitant]
  6. DILTIAZEM HYDROCHLORIDE [Suspect]
     Indication: HYPERTENSION
     Dosage: 250 MG, DAILY DOSE
     Dates: start: 20080903, end: 20080903

REACTIONS (3)
  - THALAMUS HAEMORRHAGE [None]
  - CARDIAC ARREST [None]
  - HYPERTENSIVE CRISIS [None]
